FAERS Safety Report 15470955 (Version 1)
Quarter: 2018Q4

REPORT INFORMATION
  Report Type: Spontaneous
  Country: PL (occurrence: PL)
  Receive Date: 20181006
  Receipt Date: 20181006
  Transmission Date: 20190205
  Serious: Yes (Hospitalization, Other)
  Sender: FDA-Public Use
  Company Number: PL-AUROBINDO-AUR-APL-2018-048923

PATIENT
  Age: 70 Year
  Sex: Male

DRUGS (14)
  1. CIPROFLOXACIN. [Interacting]
     Active Substance: CIPROFLOXACIN
     Indication: PROSTATITIS
     Dosage: 500 MILLIGRAM, TWO TIMES A DAY
     Route: 048
  2. QUETIAPINE. [Interacting]
     Active Substance: QUETIAPINE
     Indication: DEPRESSED MOOD
  3. DIGOXIN. [Concomitant]
     Active Substance: DIGOXIN
     Indication: SOMATIC SYMPTOM DISORDER
     Dosage: 0.1 MILLIGRAM, ONCE A DAY
     Route: 065
  4. METFORMIN [Concomitant]
     Active Substance: METFORMIN HYDROCHLORIDE
     Indication: SOMATIC SYMPTOM DISORDER
     Dosage: 1000 MILLIGRAM, TWO TIMES A DAY
     Route: 065
  5. DULOXETINE. [Interacting]
     Active Substance: DULOXETINE
     Indication: PRODUCT USED FOR UNKNOWN INDICATION
     Dosage: 60 MILLIGRAM, ONCE A DAY
     Route: 065
  6. TAMSULOSIN [Concomitant]
     Active Substance: TAMSULOSIN
     Indication: SOMATIC SYMPTOM DISORDER
     Dosage: 0.4 MILLIGRAM, ONCE A DAY
     Route: 065
  7. METOPROLOL. [Suspect]
     Active Substance: METOPROLOL
     Indication: SOMATIC SYMPTOM DISORDER
     Dosage: 50 MILLIGRAM, TWO TIMES A DAY
     Route: 065
  8. QUETIAPINE. [Interacting]
     Active Substance: QUETIAPINE
     Indication: AFFECTIVE DISORDER
  9. ALPHA LIPOIC ACID [Concomitant]
     Active Substance: .ALPHA.-LIPOIC ACID
     Indication: SOMATIC SYMPTOM DISORDER
     Dosage: 600 MILLIGRAM, ONCE A DAY
     Route: 065
  10. QUETIAPINE. [Interacting]
     Active Substance: QUETIAPINE
     Indication: ANHEDONIA
  11. DULOXETINE. [Interacting]
     Active Substance: DULOXETINE
     Dosage: 90 MILLIGRAM, ONCE A DAY
     Route: 065
  12. DABIGATRAN [Concomitant]
     Active Substance: DABIGATRAN
     Indication: SOMATIC SYMPTOM DISORDER
     Dosage: 150 MILLIGRAM, TWO TIMES A DAY
     Route: 065
  13. QUETIAPINE. [Interacting]
     Active Substance: QUETIAPINE
     Indication: INITIAL INSOMNIA
     Dosage: 50 MILLIGRAM, ONCE A DAY,(BEFORE BEDTIME)
     Route: 065
  14. CIPROFLOXACIN. [Interacting]
     Active Substance: CIPROFLOXACIN
     Dosage: 500 MILLIGRAM, ONCE A DAY
     Route: 048

REACTIONS (10)
  - Tremor [Recovered/Resolved]
  - Nausea [Recovered/Resolved]
  - Urinary retention [Recovered/Resolved]
  - Yawning [Recovered/Resolved]
  - Anxiety [Recovered/Resolved]
  - Drug interaction [Recovered/Resolved]
  - Bradycardia [Recovered/Resolved]
  - Pain [Recovered/Resolved]
  - Diplopia [Recovered/Resolved]
  - Dizziness [Recovered/Resolved]
